FAERS Safety Report 8836264 (Version 3)
Quarter: 2013Q4

REPORT INFORMATION
  Report Type: Report from Study
  Country: JP (occurrence: JP)
  Receive Date: 20121011
  Receipt Date: 20131224
  Transmission Date: 20140711
  Serious: Yes (Hospitalization, Other)
  Sender: FDA-Public Use
  Company Number: PHHY2011JP098056

PATIENT
  Age: 35 Year
  Sex: Female

DRUGS (38)
  1. LEPONEX / CLOZARIL [Suspect]
     Indication: SCHIZOPHRENIA, PARANOID TYPE
     Dosage: 12.5 MG, DAILY
     Route: 048
     Dates: start: 20110726, end: 20110726
  2. LEPONEX / CLOZARIL [Suspect]
     Dosage: 25 MG, DAILY
     Route: 048
     Dates: start: 20110727, end: 20110727
  3. LEPONEX / CLOZARIL [Suspect]
     Dosage: 50 MG, DAILY
     Route: 048
     Dates: start: 20110728, end: 20110801
  4. LEPONEX / CLOZARIL [Suspect]
     Dosage: 100 MG, DAILY
     Route: 048
     Dates: start: 20110802, end: 20110803
  5. LEPONEX / CLOZARIL [Suspect]
     Dosage: 125 MG, DAILY
     Route: 048
     Dates: start: 20110804, end: 20110808
  6. LEPONEX / CLOZARIL [Suspect]
     Dosage: 150 MG, DAILY
     Route: 048
     Dates: start: 20110809, end: 20110810
  7. LEPONEX / CLOZARIL [Suspect]
     Dosage: 175 MG, DAILY
     Route: 048
     Dates: start: 20110811, end: 20110815
  8. LEPONEX / CLOZARIL [Suspect]
     Dosage: 200 MG, DAILY
     Route: 048
     Dates: start: 20110816, end: 20110817
  9. LEPONEX / CLOZARIL [Suspect]
     Dosage: 300 MG, DAILY
     Route: 048
     Dates: start: 20110818, end: 20110821
  10. LEPONEX / CLOZARIL [Suspect]
     Dosage: 400 MG, DAILY
     Route: 048
     Dates: start: 20110822, end: 20110825
  11. LEPONEX / CLOZARIL [Suspect]
     Dosage: 500 MG, DAILY
     Route: 048
     Dates: start: 20110826, end: 20110829
  12. LEPONEX / CLOZARIL [Suspect]
     Dosage: 600 MG, DAILY
     Route: 048
     Dates: start: 20110830, end: 20111114
  13. LEPONEX / CLOZARIL [Suspect]
     Dosage: 500 MG, DAILY
     Route: 048
     Dates: start: 20111115, end: 20111128
  14. LEPONEX / CLOZARIL [Suspect]
     Dosage: 600 MG, DAILY
     Route: 048
     Dates: start: 20111129, end: 20120229
  15. LEPONEX / CLOZARIL [Suspect]
     Dosage: 600 MG, DAILY
     Route: 048
     Dates: start: 20120306
  16. PURSENNID [Suspect]
     Indication: CONSTIPATION
     Dosage: 24 MG, UNK
     Route: 048
     Dates: start: 20110726, end: 20111006
  17. PURSENNID [Suspect]
     Dosage: 36 MG, UNK
     Route: 048
     Dates: start: 20111007, end: 20111013
  18. PURSENNID [Suspect]
     Dosage: 48 MG, UNK
     Route: 048
     Dates: start: 20111014
  19. VEGETAMIN A [Concomitant]
     Indication: INSOMNIA
     Dosage: 1 DF, UNK
     Route: 048
     Dates: start: 20110726, end: 20110801
  20. CHLORPROMAZINE [Concomitant]
     Dosage: 25 MG, UNK
     Route: 048
     Dates: start: 20110726, end: 20110801
  21. LEVOMEPROMAZINE MALEATE [Concomitant]
     Dosage: 50 MG, UNK
     Route: 048
     Dates: start: 20110726
  22. LEVOMEPROMAZINE MALEATE [Concomitant]
     Dosage: 25 MG, UNK
     Route: 048
  23. LEVOMEPROMAZINE MALEATE [Concomitant]
     Dosage: 50 MG, UNK
     Route: 048
  24. HALOPERIDOL [Concomitant]
     Dosage: 6.6 MG, UNK
     Route: 048
     Dates: start: 20110726
  25. HALOPERIDOL [Concomitant]
     Dosage: 3.3 MG, UNK
     Route: 048
  26. HALOPERIDOL [Concomitant]
     Dosage: 6.6 MG, UNK
     Route: 048
  27. RISPERDAL [Concomitant]
     Dosage: 12 MG, UNK
     Route: 048
     Dates: start: 20110726
  28. RISPERDAL [Concomitant]
     Dosage: 6 MG, UNK
     Route: 048
  29. RISPERDAL [Concomitant]
     Dosage: 12 MG, UNK
     Route: 048
  30. DEPAKENE-R [Concomitant]
     Indication: SCHIZOPHRENIA, PARANOID TYPE
     Dosage: 800 MG, UNK
     Route: 048
     Dates: start: 20120306
  31. LITHIUM CARBONATE [Concomitant]
     Indication: WHITE BLOOD CELL COUNT DECREASED
     Dosage: 800 MG, UNK
     Route: 048
  32. SENNOSIDE [Concomitant]
     Indication: ILEUS
     Dosage: 48 MG, UNK
     Route: 048
     Dates: start: 20120306
  33. PANTOSIN [Concomitant]
     Indication: ILEUS
     Dosage: 600 MG, UNK
     Route: 048
     Dates: start: 20120306
  34. MAGNESIUM OXIDE [Concomitant]
     Indication: ILEUS
     Dosage: 2000 MG, UNK
     Route: 048
     Dates: start: 20120306
  35. LIMAS [Concomitant]
     Indication: SCHIZOPHRENIA, PARANOID TYPE
     Dosage: 400 MG, UNK
     Route: 048
     Dates: start: 20120127
  36. OLANZAPINE [Concomitant]
     Dosage: 20 MG, UNK
     Route: 048
     Dates: start: 20110726
  37. OLANZAPINE [Concomitant]
     Dosage: 10 MG, UNK
     Route: 048
  38. OLANZAPINE [Concomitant]
     Dosage: 20 MG, UNK
     Route: 048

REACTIONS (6)
  - Loss of consciousness [Unknown]
  - Convulsion [Recovered/Resolved]
  - Fall [Unknown]
  - Heart rate increased [Unknown]
  - Constipation [Not Recovered/Not Resolved]
  - Drug ineffective [Unknown]
